FAERS Safety Report 21608235 (Version 1)
Quarter: 2022Q4

REPORT INFORMATION
  Report Type: Spontaneous
  Country: DE (occurrence: DE)
  Receive Date: 20221117
  Receipt Date: 20221117
  Transmission Date: 20230113
  Serious: Yes (Other)
  Sender: FDA-Public Use
  Company Number: DE-Accord-285582

PATIENT
  Age: 63 Year
  Sex: Female

DRUGS (4)
  1. CAPECITABINE [Suspect]
     Active Substance: CAPECITABINE
     Indication: Breast cancer metastatic
     Dosage: STRENGTH: 500 MG?DAILY DOSAGE OF 2X 2000 MG
     Route: 048
     Dates: start: 202202
  2. LETROZOLE [Concomitant]
     Active Substance: LETROZOLE
  3. BEVACIZUMAB [Concomitant]
     Active Substance: BEVACIZUMAB
     Dosage: STOPPED TAKING BEVACIZUMAB 4 WEEKS AGO
  4. CAPECITABINE [Suspect]
     Active Substance: CAPECITABINE
     Indication: Breast cancer metastatic
     Dosage: STRENGTH: 500 MG?DAILY DOSAGE OF 2X 1500MG/DAY
     Route: 048

REACTIONS (17)
  - Epistaxis [Unknown]
  - Rhinorrhoea [Unknown]
  - Asthenia [Unknown]
  - Dyspnoea [Unknown]
  - Cough [Unknown]
  - Taste disorder [Unknown]
  - Decreased appetite [Unknown]
  - Abdominal distension [Unknown]
  - Dysphonia [Unknown]
  - Nocturia [Recovered/Resolved]
  - Alopecia [Unknown]
  - Night sweats [Unknown]
  - Palmar-plantar erythrodysaesthesia syndrome [Unknown]
  - Ascites [Unknown]
  - Spontaneous bacterial peritonitis [Unknown]
  - Movement disorder [Unknown]
  - Fall [Unknown]
